FAERS Safety Report 5049965-8 (Version None)
Quarter: 2006Q3

REPORT INFORMATION
  Report Type: 
  Country: None (occurrence: None)
  Receive Date: 20060707
  Receipt Date: 20060626
  Transmission Date: 20061208
  Serious: Yes (Life-Threatening, Hospitalization)
  Sender: FDA-Public Use
  Company Number: 2006-01601

PATIENT
  Sex: Male

DRUGS (1)
  1. VELCADE [Suspect]
     Dates: end: 20060320

REACTIONS (1)
  - HYPOTENSION [None]
